FAERS Safety Report 4911962-8 (Version None)
Quarter: 2006Q1

REPORT INFORMATION
  Report Type: 
  Country: None (occurrence: None)
  Receive Date: 20060215
  Receipt Date: 20060119
  Transmission Date: 20060701
  Serious: Yes (Hospitalization)
  Sender: FDA-Public Use
  Company Number: AU-BRISTOL-MYERS SQUIBB COMPANY-13254941

PATIENT

DRUGS (2)
  1. TAXOL [Suspect]
     Indication: PROSTATE CANCER
     Route: 042
     Dates: start: 20050927, end: 20060110
  2. VINORELBINE [Suspect]
     Indication: PROSTATE CANCER
     Route: 042
     Dates: start: 20050927, end: 20060110

REACTIONS (2)
  - ANXIETY [None]
  - DIARRHOEA [None]
